FAERS Safety Report 18959114 (Version 1)
Quarter: 2021Q1

REPORT INFORMATION
  Report Type: Spontaneous
  Country: IT (occurrence: IT)
  Receive Date: 20210302
  Receipt Date: 20210302
  Transmission Date: 20210420
  Serious: Yes (Death, Other)
  Sender: FDA-Public Use
  Company Number: IT-AMGEN-ITASP2021030880

PATIENT

DRUGS (1)
  1. FILGRASTIM [Suspect]
     Active Substance: FILGRASTIM
     Indication: STEM CELL TRANSPLANT
     Dosage: 5 MICROGRAM/KILOGRAM
     Route: 065

REACTIONS (4)
  - Infection [Fatal]
  - Leukaemia recurrent [Unknown]
  - Immune system disorder [Unknown]
  - Death [Fatal]
